FAERS Safety Report 11146453 (Version 2)
Quarter: 2015Q3

REPORT INFORMATION
  Report Type: Report from Study
  Country: CH (occurrence: CH)
  Receive Date: 20150528
  Receipt Date: 20150724
  Transmission Date: 20151125
  Serious: Yes (Death)
  Sender: FDA-Public Use
  Company Number: PHHY2014CH173596

PATIENT
  Age: 64 Year
  Sex: Male

DRUGS (1)
  1. ILARIS [Suspect]
     Active Substance: CANAKINUMAB
     Indication: AUTOINFLAMMATORY DISEASE
     Dosage: UNK
     Route: 065

REACTIONS (2)
  - Off label use [Unknown]
  - Lung disorder [Fatal]
